FAERS Safety Report 8111367-5 (Version None)
Quarter: 2012Q1

REPORT INFORMATION
  Report Type: 
  Country: None (occurrence: None)
  Receive Date: 20120203
  Receipt Date: 20111011
  Transmission Date: 20120608
  Serious: No
  Sender: FDA-Public Use
  Company Number: US-GLAXOSMITHKLINE-A0948653A

PATIENT
  Sex: Male

DRUGS (2)
  1. UNKNOWN [Concomitant]
  2. LAMICTAL [Suspect]
     Indication: CONVULSION
     Route: 048

REACTIONS (2)
  - STOMATITIS [None]
  - EATING DISORDER [None]
